FAERS Safety Report 18864517 (Version 2)
Quarter: 2021Q3

REPORT INFORMATION
  Report Type: Spontaneous
  Country: US (occurrence: US)
  Receive Date: 20210208
  Receipt Date: 20210902
  Transmission Date: 20211014
  Serious: Yes (Other)
  Sender: FDA-Public Use
  Company Number: US-PFIZER INC-2021035459

PATIENT
  Age: 65 Year
  Sex: Female

DRUGS (3)
  1. XELJANZ [Suspect]
     Active Substance: TOFACITINIB CITRATE
     Dosage: 5 MG
     Dates: end: 20201229
  2. XELJANZ [Suspect]
     Active Substance: TOFACITINIB CITRATE
     Dosage: 5 MG
     Dates: start: 202006
  3. XELJANZ [Suspect]
     Active Substance: TOFACITINIB CITRATE
     Dosage: 5 MG
     Dates: start: 202006, end: 202007

REACTIONS (9)
  - Rheumatoid arthritis [Unknown]
  - Pain in extremity [Unknown]
  - Weight increased [Unknown]
  - Fall [Not Recovered/Not Resolved]
  - Exostosis [Unknown]
  - Peripheral swelling [Unknown]
  - Stress fracture [Not Recovered/Not Resolved]
  - Plantar fasciitis [Unknown]
  - Hyperthyroidism [Unknown]

NARRATIVE: CASE EVENT DATE: 2020
